FAERS Safety Report 7031050-7 (Version None)
Quarter: 2010Q4

REPORT INFORMATION
  Report Type: 
  Country: None (occurrence: None)
  Receive Date: 20101001
  Receipt Date: 20100924
  Transmission Date: 20110411
  Serious: Yes (Other)
  Sender: FDA-Public Use
  Company Number: IMP_05105_2010

PATIENT
  Sex: Male

DRUGS (2)
  1. BUDEPRION 150 MG (NOT SPECIFIED) [Suspect]
     Indication: PRODUCT USED FOR UNKNOWN INDICATION
     Dosage: 150 MG QD ORAL
     Route: 048
     Dates: start: 20061001, end: 20070101
  2. WELLBUTRIN [Suspect]
     Indication: PRODUCT USED FOR UNKNOWN INDICATION
     Dosage: DF

REACTIONS (8)
  - DECREASED ACTIVITY [None]
  - DISTURBANCE IN ATTENTION [None]
  - DYSPHONIA [None]
  - MATERNAL DRUGS AFFECTING FOETUS [None]
  - MEMORY IMPAIRMENT [None]
  - NEUROLOGICAL SYMPTOM [None]
  - PSYCHOMOTOR HYPERACTIVITY [None]
  - SPEECH DISORDER DEVELOPMENTAL [None]
